FAERS Safety Report 5492802-8 (Version None)
Quarter: 2007Q4

REPORT INFORMATION
  Report Type: 
  Country: None (occurrence: None)
  Receive Date: 20071023
  Receipt Date: 20071018
  Transmission Date: 20080405
  Serious: Yes (Hospitalization, Other)
  Sender: FDA-Public Use
  Company Number: KR-ELI_LILLY_AND_COMPANY-KR200705002274

PATIENT
  Sex: Male
  Weight: 56.7 kg

DRUGS (6)
  1. PEMETREXED [Suspect]
     Indication: NON-SMALL CELL LUNG CANCER
     Dosage: D1
     Route: 042
     Dates: start: 20070208, end: 20070302
  2. CARBOPLATIN [Suspect]
     Indication: NON-SMALL CELL LUNG CANCER
     Dosage: D 1
     Route: 042
     Dates: start: 20070208, end: 20070302
  3. FOLIC ACID [Concomitant]
     Dosage: 1 MG, DAILY (1/D)
     Route: 048
     Dates: start: 20070201, end: 20070323
  4. VITAMIN B-12 [Concomitant]
     Dosage: 1000 UG, DAILY (1/D)
     Dates: start: 20070201, end: 20070212
  5. DEXAMETHASONE 0.5MG TAB [Concomitant]
     Dosage: 4 MG, 2/D
     Route: 048
     Dates: start: 20070207, end: 20070212
  6. GRANISETRON  HCL [Concomitant]
     Indication: NAUSEA
     Dates: start: 20070208, end: 20070212

REACTIONS (2)
  - MALIGNANT NEOPLASM PROGRESSION [None]
  - NEPHROTIC SYNDROME [None]
